FAERS Safety Report 6070262-6 (Version None)
Quarter: 2009Q1

REPORT INFORMATION
  Report Type: 
  Country: None (occurrence: None)
  Receive Date: 20090209
  Receipt Date: 20090128
  Transmission Date: 20090719
  Serious: Yes (Other)
  Sender: FDA-Public Use
  Company Number: US-ROCHE-611185

PATIENT
  Sex: Female

DRUGS (2)
  1. CAPECITABINE [Suspect]
     Route: 048
  2. CAPECITABINE [Suspect]
     Dosage: DOSAGE LOWERED
     Route: 048
     Dates: start: 20081001

REACTIONS (3)
  - BURNING SENSATION [None]
  - ERYTHEMA [None]
  - TUMOUR MARKER INCREASED [None]
